FAERS Safety Report 12718103 (Version 4)
Quarter: 2016Q4

REPORT INFORMATION
  Report Type: Report from Study
  Country: US (occurrence: US)
  Receive Date: 20160906
  Receipt Date: 20161019
  Transmission Date: 20170207
  Serious: Yes (Hospitalization, Other)
  Sender: FDA-Public Use
  Company Number: US-GILEAD-2016-0212558

PATIENT
  Age: 47 Year
  Sex: Female

DRUGS (4)
  1. DAKLINZA [Concomitant]
     Active Substance: DACLATASVIR
     Dosage: UNK
  2. SOFOSBUVIR [Suspect]
     Active Substance: SOFOSBUVIR
     Indication: HEPATITIS C
     Dosage: 400 MG, QD
     Route: 048
     Dates: start: 20160502
  3. METHADONE [Concomitant]
     Active Substance: METHADONE HYDROCHLORIDE
  4. GABAPENTIN. [Concomitant]
     Active Substance: GABAPENTIN

REACTIONS (26)
  - Abdominal pain upper [Unknown]
  - Blood pressure increased [Not Recovered/Not Resolved]
  - Pruritus [Unknown]
  - Feeling hot [Not Recovered/Not Resolved]
  - Pain in extremity [Not Recovered/Not Resolved]
  - Pain [Not Recovered/Not Resolved]
  - Weight increased [Unknown]
  - Thrombosis [Recovering/Resolving]
  - Dizziness [Unknown]
  - Fatigue [Not Recovered/Not Resolved]
  - Unevaluable event [Not Recovered/Not Resolved]
  - Feeling drunk [Unknown]
  - Headache [Not Recovered/Not Resolved]
  - Rash [Not Recovered/Not Resolved]
  - Restless legs syndrome [Not Recovered/Not Resolved]
  - Nausea [Unknown]
  - Solar lentigo [Unknown]
  - Peripheral swelling [Not Recovered/Not Resolved]
  - Gait disturbance [Unknown]
  - Oropharyngeal pain [Unknown]
  - Somnolence [Unknown]
  - Joint crepitation [Not Recovered/Not Resolved]
  - Mobility decreased [Not Recovered/Not Resolved]
  - Insomnia [Not Recovered/Not Resolved]
  - Swelling [Unknown]
  - Muscular weakness [Not Recovered/Not Resolved]
